FAERS Safety Report 8259193-0 (Version None)
Quarter: 2012Q2

REPORT INFORMATION
  Report Type: 
  Country: None (occurrence: None)
  Receive Date: 20120403
  Receipt Date: 20120403
  Transmission Date: 20120825
  Serious: Yes (Other)
  Sender: FDA-Public Use
  Company Number: None

PATIENT
  Sex: Female
  Weight: 69.8539 kg

DRUGS (5)
  1. LEVOXYL [Concomitant]
  2. NIFEDIPINE [Suspect]
     Indication: RAYNAUD'S PHENOMENON
     Dosage: 1 TABLET 1 PER DAY AM
     Dates: start: 20120207, end: 20120213
  3. NIFEDIPINE [Suspect]
     Indication: BLOOD PRESSURE
     Dosage: 1 TABLET 1 PER DAY AM
     Dates: start: 20120207, end: 20120213
  4. LOSARTAN 50 MG (GENERIC FR COZAR) ZYDUS [Suspect]
     Indication: BLOOD PRESSURE
     Dosage: 1 TABLET 2 PER DAY AM + PM
     Dates: start: 20100501
  5. URSODIOL [Concomitant]

REACTIONS (5)
  - DROOLING [None]
  - HYPOAESTHESIA ORAL [None]
  - TONGUE DRY [None]
  - JOINT SWELLING [None]
  - OEDEMA PERIPHERAL [None]
